FAERS Safety Report 17249757 (Version 1)
Quarter: 2020Q1

REPORT INFORMATION
  Report Type: Other
  Country: GB (occurrence: GB)
  Receive Date: 20200109
  Receipt Date: 20200109
  Transmission Date: 20200409
  Serious: Yes (Hospitalization)
  Sender: FDA-Public Use
  Company Number: GB-SUNRISE PHARMACEUTICAL, INC.-2078693

PATIENT
  Age: 61 Year
  Sex: Male

DRUGS (4)
  1. OXYCODONE HYDROCHLORIDE. [Suspect]
     Active Substance: OXYCODONE HYDROCHLORIDE
     Indication: PAIN
  2. FENTANYL. [Suspect]
     Active Substance: FENTANYL
     Route: 065
  3. LINEZOLID. [Suspect]
     Active Substance: LINEZOLID
     Route: 065
  4. CITALOPRAM [Suspect]
     Active Substance: CITALOPRAM HYDROBROMIDE
     Route: 065

REACTIONS (1)
  - Serotonin syndrome [Recovering/Resolving]
